FAERS Safety Report 18685846 (Version 2)
Quarter: 2022Q2

REPORT INFORMATION
  Report Type: Spontaneous
  Country: CH (occurrence: CH)
  Receive Date: 20201230
  Receipt Date: 20220606
  Transmission Date: 20220721
  Serious: Yes (Death, Other)
  Sender: FDA-Public Use
  Company Number: None

PATIENT
  Age: 67 Year
  Sex: Male

DRUGS (30)
  1. OXYCODONE HYDROCHLORIDE [Suspect]
     Active Substance: OXYCODONE HYDROCHLORIDE
     Indication: Product used for unknown indication
     Dosage: 5 MG, TID
     Route: 048
     Dates: start: 20201208
  2. OXYCODONE HYDROCHLORIDE [Suspect]
     Active Substance: OXYCODONE HYDROCHLORIDE
     Dosage: 10 MG, TID (AS NEEDED)
     Route: 048
     Dates: start: 20201201, end: 20201208
  3. OXYCODONE HYDROCHLORIDE [Suspect]
     Active Substance: OXYCODONE HYDROCHLORIDE
     Dosage: 5 MG, TID (MAX, AS NEEDED)
     Route: 048
     Dates: start: 20200724
  4. OXYCODONE HYDROCHLORIDE [Suspect]
     Active Substance: OXYCODONE HYDROCHLORIDE
     Dosage: 10MG 3X/D MAX
     Route: 048
     Dates: start: 20201203, end: 20201223
  5. OXYCODONE HYDROCHLORIDE [Suspect]
     Active Substance: OXYCODONE HYDROCHLORIDE
     Dosage: 5 MG, TID (MAX, AS NEEDED)
     Route: 048
     Dates: start: 20200724, end: 20201203
  6. NALOXONE HYDROCHLORIDE\OXYCODONE HYDROCHLORIDE [Suspect]
     Active Substance: NALOXONE HYDROCHLORIDE\OXYCODONE HYDROCHLORIDE
     Indication: Product used for unknown indication
     Dosage: 20 MG, Q12H (DELAYED TABLET)
     Route: 048
     Dates: start: 20201207
  7. NALOXONE HYDROCHLORIDE\OXYCODONE HYDROCHLORIDE [Suspect]
     Active Substance: NALOXONE HYDROCHLORIDE\OXYCODONE HYDROCHLORIDE
     Dosage: 25 MG, Q12H (DELAYED TABLET)
     Route: 048
     Dates: start: 20201201, end: 20201207
  8. NALOXONE HYDROCHLORIDE\OXYCODONE HYDROCHLORIDE [Suspect]
     Active Substance: NALOXONE HYDROCHLORIDE\OXYCODONE HYDROCHLORIDE
     Dosage: 20 MG, Q12H (DELAYED TABLET)
     Route: 048
     Dates: start: 20201116, end: 20201201
  9. NALOXONE HYDROCHLORIDE\OXYCODONE HYDROCHLORIDE [Suspect]
     Active Substance: NALOXONE HYDROCHLORIDE\OXYCODONE HYDROCHLORIDE
     Dosage: 25MG 2X/D
     Route: 065
     Dates: start: 20201215, end: 20201217
  10. NALOXONE HYDROCHLORIDE\OXYCODONE HYDROCHLORIDE [Suspect]
     Active Substance: NALOXONE HYDROCHLORIDE\OXYCODONE HYDROCHLORIDE
     Dosage: 30MG  2X/D
     Route: 065
     Dates: start: 20201218, end: 20201223
  11. PREGABALIN [Suspect]
     Active Substance: PREGABALIN
     Indication: Product used for unknown indication
     Dosage: 50 MG, TID
     Route: 048
     Dates: start: 20200610
  12. PREGABALIN [Suspect]
     Active Substance: PREGABALIN
     Dosage: 25 MG 2X/D
     Route: 048
     Dates: start: 20201216, end: 20201222
  13. PREGABALIN [Suspect]
     Active Substance: PREGABALIN
     Dosage: 50MG 2X/D
     Route: 048
     Dates: start: 20201211, end: 20201216
  14. PREGABALIN [Suspect]
     Active Substance: PREGABALIN
     Dosage: 50MG 3X/D
     Route: 048
     Dates: start: 20200610, end: 20201211
  15. METOPROLOL SUCCINATE [Concomitant]
     Active Substance: METOPROLOL SUCCINATE
     Indication: Product used for unknown indication
     Dosage: UNK
     Route: 065
  16. PREDNISONE [Concomitant]
     Active Substance: PREDNISONE
     Indication: Mononeuritis
     Dosage: 100 MG, DAILY
     Route: 048
     Dates: start: 20200724
  17. XARELTO [Concomitant]
     Active Substance: RIVAROXABAN
     Indication: Product used for unknown indication
     Dosage: UNK
     Route: 065
     Dates: start: 20201202
  18. TORSEMIDE [Concomitant]
     Active Substance: TORSEMIDE
     Indication: Product used for unknown indication
     Dosage: UNK
     Route: 065
  19. VALTREX [Concomitant]
     Active Substance: VALACYCLOVIR HYDROCHLORIDE
     Indication: Product used for unknown indication
     Dosage: UNK
     Route: 065
  20. NEXIUM MUPS                        /01479302/ [Concomitant]
     Indication: Product used for unknown indication
     Dosage: UNK
     Route: 065
  21. ATOVAQUONE [Concomitant]
     Active Substance: ATOVAQUONE
     Indication: Product used for unknown indication
     Dosage: UNK
     Route: 065
  22. INSULATARD                         /00646002/ [Concomitant]
     Indication: Product used for unknown indication
     Dosage: UNK
     Route: 065
  23. ALBUTEROL SULFATE\IPRATROPIUM BROMIDE [Concomitant]
     Active Substance: ALBUTEROL SULFATE\IPRATROPIUM BROMIDE
     Indication: Product used for unknown indication
     Dosage: UNK
     Route: 055
  24. NOVORAPID [Concomitant]
     Active Substance: INSULIN ASPART
     Indication: Product used for unknown indication
     Dosage: UNK
     Route: 065
  25. CEFEPIME [Concomitant]
     Active Substance: CEFEPIME HYDROCHLORIDE
     Indication: Product used for unknown indication
     Dosage: UNK
     Route: 065
  26. FOLIC ACID [Concomitant]
     Active Substance: FOLIC ACID
     Indication: Product used for unknown indication
     Dosage: UNK
     Route: 065
  27. ELECTROLYTES NOS W/MACROGOL [Concomitant]
     Indication: Product used for unknown indication
     Dosage: UNK
     Route: 065
  28. ESOMEPRAZOLE [Concomitant]
     Active Substance: ESOMEPRAZOLE
     Indication: Product used for unknown indication
     Dosage: UNK
     Route: 065
  29. ISOPHANE INSULIN [Concomitant]
     Active Substance: INSULIN NOS
     Indication: Product used for unknown indication
     Dosage: UNK
     Route: 065
  30. ELECTROLYTES NOS\POLYETHYLENE GLYCOLS [Concomitant]
     Active Substance: ELECTROLYTES NOS\POLYETHYLENE GLYCOLS
     Indication: Product used for unknown indication
     Dosage: UNK
     Route: 065

REACTIONS (1)
  - Myoclonus [Recovering/Resolving]

NARRATIVE: CASE EVENT DATE: 20201101
